FAERS Safety Report 14158936 (Version 1)
Quarter: 2017Q4

REPORT INFORMATION
  Report Type: Spontaneous
  Country: US (occurrence: US)
  Receive Date: 20171106
  Receipt Date: 20171106
  Transmission Date: 20180321
  Serious: Yes (Hospitalization, Other)
  Sender: FDA-Public Use
  Company Number: US-B.I. PHARMACEUTICALS,INC./RIDGEFIELD-2017-BI-058731

PATIENT
  Sex: Male

DRUGS (1)
  1. SPIRIVA [Suspect]
     Active Substance: TIOTROPIUM BROMIDE MONOHYDRATE
     Indication: CHRONIC OBSTRUCTIVE PULMONARY DISEASE
     Dosage: 1 CAPSULE 1 TIME DAILY;  FORM STRENGTH:18 MCG; FORMULATION: CAPSULE? ADMINISTRATION CORRECT? NR(NOT
     Route: 055
     Dates: end: 2017

REACTIONS (8)
  - Cardiac infection [Recovered/Resolved]
  - Pelvic fracture [Recovered/Resolved]
  - Pyrexia [Unknown]
  - Eating disorder [Unknown]
  - Dementia [Not Recovered/Not Resolved]
  - Aspiration [Unknown]
  - Fall [Recovered/Resolved]
  - Pneumonia [Not Recovered/Not Resolved]

NARRATIVE: CASE EVENT DATE: 2015
